FAERS Safety Report 6223719-9 (Version None)
Quarter: 2009Q2

REPORT INFORMATION
  Report Type: 
  Country: None (occurrence: None)
  Receive Date: 20090611
  Receipt Date: 20090306
  Transmission Date: 20091009
  Serious: No
  Sender: FDA-Public Use
  Company Number: US-ABBOTT-08P-163-0491933-00

PATIENT
  Sex: Female
  Weight: 56.75 kg

DRUGS (16)
  1. HUMIRA [Suspect]
     Indication: RHEUMATOID ARTHRITIS
     Dates: start: 20080101, end: 20081001
  2. HUMIRA [Suspect]
     Dates: start: 20081001
  3. PLAQUENIL [Concomitant]
     Indication: DRUG USE FOR UNKNOWN INDICATION
  4. LODINE [Concomitant]
     Indication: DRUG USE FOR UNKNOWN INDICATION
  5. AZULFIDINE EN-TABS [Concomitant]
     Indication: DRUG USE FOR UNKNOWN INDICATION
  6. FOLIC ACID [Concomitant]
     Indication: DRUG USE FOR UNKNOWN INDICATION
  7. VIT D [Concomitant]
     Indication: DRUG USE FOR UNKNOWN INDICATION
  8. CLARITIN [Concomitant]
     Indication: DRUG USE FOR UNKNOWN INDICATION
  9. MUCINEX [Concomitant]
     Indication: DRUG USE FOR UNKNOWN INDICATION
  10. NASONEX [Concomitant]
     Indication: DRUG USE FOR UNKNOWN INDICATION
  11. TOPAMAX [Concomitant]
     Indication: MIGRAINE
  12. RELPAX [Concomitant]
     Indication: DRUG USE FOR UNKNOWN INDICATION
  13. FROVA [Concomitant]
     Indication: HEADACHE
  14. CALCIUM [Concomitant]
     Indication: DRUG USE FOR UNKNOWN INDICATION
  15. M.V.I. [Concomitant]
     Indication: DRUG USE FOR UNKNOWN INDICATION
  16. FISH OIL [Concomitant]
     Indication: DRUG USE FOR UNKNOWN INDICATION

REACTIONS (3)
  - DRUG INEFFECTIVE [None]
  - INJECTION SITE INFLAMMATION [None]
  - INJECTION SITE SWELLING [None]
